FAERS Safety Report 21211154 (Version 1)
Quarter: 2022Q3

REPORT INFORMATION
  Report Type: Report from Study
  Country: US (occurrence: US)
  Receive Date: 20220815
  Receipt Date: 20220815
  Transmission Date: 20221026
  Serious: Yes (Hospitalization, Other)
  Sender: FDA-Public Use
  Company Number: US-BRISTOL-MYERS SQUIBB COMPANY-2022-084570

PATIENT
  Age: 78 Year
  Sex: Male
  Weight: 97.7 kg

DRUGS (3)
  1. LENALIDOMIDE [Suspect]
     Active Substance: LENALIDOMIDE
     Indication: Central nervous system lymphoma
     Route: 065
     Dates: start: 20220708, end: 20220714
  2. LENALIDOMIDE [Suspect]
     Active Substance: LENALIDOMIDE
     Route: 065
  3. RIVAROXABAN [Concomitant]
     Active Substance: RIVAROXABAN
     Indication: Coronary artery disease
     Route: 065

REACTIONS (3)
  - Device related infection [Not Recovered/Not Resolved]
  - Hypotension [Not Recovered/Not Resolved]
  - Vascular access complication [Not Recovered/Not Resolved]

NARRATIVE: CASE EVENT DATE: 20220715
